FAERS Safety Report 4686710-X (Version None)
Quarter: 2005Q2

REPORT INFORMATION
  Report Type: 
  Country: None (occurrence: None)
  Receive Date: 20050608
  Receipt Date: 20050526
  Transmission Date: 20051028
  Serious: Yes (Other)
  Sender: FDA-Public Use
  Company Number: 2005081409

PATIENT
  Age: 65 Year
  Sex: Male

DRUGS (2)
  1. LATANOPROST [Suspect]
     Indication: ILL-DEFINED DISORDER
     Dosage: OPHTHALMIC
  2. TIMOLOL MALEATE [Concomitant]

REACTIONS (3)
  - MACULAR OEDEMA [None]
  - POST PROCEDURAL COMPLICATION [None]
  - TREATMENT NONCOMPLIANCE [None]
